FAERS Safety Report 4538569-9 (Version None)
Quarter: 2004Q4

REPORT INFORMATION
  Report Type: 
  Country: None (occurrence: None)
  Receive Date: 20041222
  Receipt Date: 20041214
  Transmission Date: 20050328
  Serious: Yes (Life-Threatening)
  Sender: FDA-Public Use
  Company Number: F01200403924

PATIENT
  Age: 68 Year
  Sex: Male

DRUGS (3)
  1. OXALIPLATIN - SOLUTION - 130 MG/M2 [Suspect]
     Indication: GASTROOESOPHAGEAL CANCER
     Dosage: 130 MG/M2 Q3W, INTRAVENOUS NOS
     Route: 042
     Dates: start: 20041117, end: 20041117
  2. CAPECITABINE - TABLET - 2300 MG [Suspect]
     Dosage: 2300 MG/DAY (500 MG/M2 TWICE DAILY FOR 2 WEEKS) ORAL
     Route: 048
     Dates: start: 20041117, end: 20041201
  3. EPIRUBICIN [Suspect]
     Dosage: 50 MG/M2 Q3W INTRAVENOUS BOLUS A FEW MINS
     Route: 040
     Dates: start: 20041117, end: 20041117

REACTIONS (5)
  - CARDIAC ARREST [None]
  - CONVULSION [None]
  - EJECTION FRACTION DECREASED [None]
  - HEMIPARESIS [None]
  - MYOCARDIAL INFARCTION [None]
